FAERS Safety Report 9979491 (Version 1)
Quarter: 2014Q1

REPORT INFORMATION
  Report Type: Report from Study
  Country: US (occurrence: US)
  Receive Date: 20140306
  Receipt Date: 20140306
  Transmission Date: 20141002
  Serious: Yes (Other)
  Sender: FDA-Public Use
  Company Number: US-ABBVIE-13P-163-1171043-00

PATIENT
  Sex: 0

DRUGS (9)
  1. HUMIRA [Suspect]
     Indication: RHEUMATOID ARTHRITIS
     Dates: start: 2007
  2. ALENDRONATE [Concomitant]
     Indication: OSTEOPOROSIS
  3. INHALER FOR ASTHMA [Concomitant]
     Indication: ASTHMA
  4. METHOTREXATE [Concomitant]
     Indication: RHEUMATOID ARTHRITIS
     Dates: start: 2007
  5. METHOTREXATE [Concomitant]
  6. LYRICA [Concomitant]
     Indication: STRESS
  7. ENBREL [Concomitant]
     Route: 050
  8. DICLOFENAC [Concomitant]
     Indication: INFLAMMATORY PAIN
  9. CYMBALTA [Concomitant]
     Indication: STRESS

REACTIONS (2)
  - Hernia repair [Unknown]
  - Drug ineffective [Unknown]
